FAERS Safety Report 5386773-2 (Version None)
Quarter: 2007Q3

REPORT INFORMATION
  Report Type: 
  Country: None (occurrence: None)
  Receive Date: 20070713
  Receipt Date: 20070705
  Transmission Date: 20080115
  Serious: Yes (Other)
  Sender: FDA-Public Use
  Company Number: US-PFIZER INC-2007034904

PATIENT
  Sex: Male

DRUGS (2)
  1. ZOLOFT [Suspect]
     Indication: DEPRESSION
  2. ALCOHOL [Interacting]

REACTIONS (3)
  - DRUG INTERACTION [None]
  - HOMICIDE [None]
  - SUICIDE ATTEMPT [None]
